FAERS Safety Report 7955416-3 (Version None)
Quarter: 2011Q4

REPORT INFORMATION
  Report Type: 
  Country: None (occurrence: None)
  Receive Date: 20111202
  Receipt Date: 20111125
  Transmission Date: 20120403
  Serious: Yes (Hospitalization)
  Sender: FDA-Public Use
  Company Number: ES-CEPHALON-2011004716

PATIENT
  Sex: Female

DRUGS (3)
  1. RITUXIMAB [Concomitant]
     Indication: CHRONIC LYMPHOCYTIC LEUKAEMIA
     Dates: start: 20110809, end: 20110809
  2. BENDAMUSTINE HCL [Suspect]
     Indication: CHRONIC LYMPHOCYTIC LEUKAEMIA
     Route: 042
     Dates: start: 20110809, end: 20110810
  3. GRANISETRON [Concomitant]
     Dates: start: 20110809, end: 20110809

REACTIONS (2)
  - SKIN TOXICITY [None]
  - PYREXIA [None]
